FAERS Safety Report 4651856-9 (Version None)
Quarter: 2005Q2

REPORT INFORMATION
  Report Type: 
  Country: None (occurrence: None)
  Receive Date: 20050504
  Receipt Date: 20050428
  Transmission Date: 20051028
  Serious: Yes (Hospitalization)
  Sender: FDA-Public Use
  Company Number: 138

PATIENT
  Age: 71 Year
  Sex: Male
  Weight: 85 kg

DRUGS (3)
  1. MELPHALAN [Suspect]
     Indication: MULTIPLE MYELOMA
     Route: 042
     Dates: start: 20050123
  2. THALIDOMIDE [Suspect]
     Indication: MULTIPLE MYELOMA
     Dosage: 100MG PER DAY
     Route: 048
     Dates: start: 20050221
  3. DEXAMETHASONE [Suspect]
     Indication: MULTIPLE MYELOMA
     Dosage: 20MG CYCLIC
     Route: 048
     Dates: start: 20050221

REACTIONS (2)
  - DEHYDRATION [None]
  - DIARRHOEA [None]
